FAERS Safety Report 16763622 (Version 1)
Quarter: 2020Q3

REPORT INFORMATION
  Report Type: Report from Study
  Country: GB (occurrence: GB)
  Receive Date: 20190902
  Receipt Date: 20190902
  Transmission Date: 20201104
  Serious: Yes (Hospitalization, Disabling, Other)
  Sender: FDA-Public Use
  Company Number: GB-JNJFOC-20190827478

PATIENT
  Age: 57 Year
  Sex: Male
  Weight: 81.7 kg

DRUGS (8)
  1. CYCLOPHOSPHAMIDE. [Suspect]
     Active Substance: CYCLOPHOSPHAMIDE
     Indication: PLASMA CELL MYELOMA
     Dosage: MOST RECENT DOSE: 07/MAY/2019
     Route: 048
     Dates: start: 20190226
  2. MELPHALAN. [Suspect]
     Active Substance: MELPHALAN
     Indication: PLASMA CELL MYELOMA
     Dosage: 200 MG/KG
     Route: 042
     Dates: start: 20190806
  3. CYCLOPHOSPHAMIDE. [Suspect]
     Active Substance: CYCLOPHOSPHAMIDE
     Indication: PLASMA CELL MYELOMA
     Route: 042
     Dates: start: 20190624
  4. LENALIDOMIDE CAPSULE NON?COMPANY [Suspect]
     Active Substance: LENALIDOMIDE
     Indication: PLASMA CELL MYELOMA
     Dosage: MOST RECENT DOSE ADMINISTERED ON 13/MAY/2019
     Route: 048
     Dates: start: 20190226
  5. FILGRASTIM [Suspect]
     Active Substance: FILGRASTIM
     Indication: PLASMA CELL MYELOMA
     Dosage: MOST RECENT DOSE: 02/JUL/2019
     Route: 058
     Dates: start: 20190625
  6. BORTEZOMIB INJECTION [Suspect]
     Active Substance: BORTEZOMIB
     Indication: PLASMA CELL MYELOMA
     Dosage: MOST RECENT DOSE: 12/AUG/2019
     Route: 058
     Dates: start: 20190226
  7. DARATUMUMAB [Suspect]
     Active Substance: DARATUMUMAB
     Indication: PLASMA CELL MYELOMA
     Dosage: MOST RECENT DOSE: 30/APR/2019
     Route: 042
     Dates: start: 20190226
  8. DEXAMETHASONE. [Suspect]
     Active Substance: DEXAMETHASONE
     Indication: PLASMA CELL MYELOMA
     Dosage: MOST RECENT DOSE: 10/MAY/2019
     Route: 048
     Dates: start: 20190226

REACTIONS (2)
  - Ileus paralytic [Not Recovered/Not Resolved]
  - Pneumonia [Not Recovered/Not Resolved]

NARRATIVE: CASE EVENT DATE: 20190818
